FAERS Safety Report 9134996 (Version 1)
Quarter: 2013Q1

REPORT INFORMATION
  Report Type: Spontaneous
  Country: US (occurrence: US)
  Receive Date: 20130304
  Receipt Date: 20130304
  Transmission Date: 20140127
  Serious: Yes (Hospitalization)
  Sender: FDA-Public Use
  Company Number: US-PFIZER INC-2013070406

PATIENT
  Sex: Female

DRUGS (2)
  1. BOSULIF [Suspect]
     Dosage: 200 MG, UNK
  2. BOSULIF [Suspect]
     Dosage: 500 MG, UNK

REACTIONS (5)
  - Amylase increased [Unknown]
  - Lipase increased [Unknown]
  - Nausea [Unknown]
  - Decreased appetite [Unknown]
  - Abdominal pain [Unknown]
